FAERS Safety Report 4713220-3 (Version None)
Quarter: 2005Q3

REPORT INFORMATION
  Report Type: 
  Country: None (occurrence: None)
  Receive Date: 20050713
  Receipt Date: 20050418
  Transmission Date: 20060218
  Serious: Yes (Life-Threatening, Hospitalization)
  Sender: FDA-Public Use
  Company Number: US-MERCK-0504USA03454

PATIENT
  Age: 72 Year
  Sex: Male
  Weight: 82 kg

DRUGS (4)
  1. VIOXX [Suspect]
     Indication: PAIN IN EXTREMITY
     Route: 048
     Dates: start: 19991126, end: 20040901
  2. PRILOSEC [Concomitant]
     Indication: DYSPHAGIA
     Route: 048
     Dates: start: 19780101
  3. NORVASC [Concomitant]
     Route: 048
     Dates: start: 20010201, end: 20040801
  4. ACCUPRIL [Concomitant]
     Route: 048
     Dates: start: 20010201, end: 20040101

REACTIONS (5)
  - BRADYCARDIA [None]
  - CEREBROVASCULAR ACCIDENT [None]
  - EXOSTOSIS [None]
  - SLEEP APNOEA SYNDROME [None]
  - SPINAL OSTEOARTHRITIS [None]
